FAERS Safety Report 8014661-1 (Version None)
Quarter: 2011Q4

REPORT INFORMATION
  Report Type: 
  Country: None (occurrence: None)
  Receive Date: 20111229
  Receipt Date: 20111221
  Transmission Date: 20120403
  Serious: Yes (Other)
  Sender: FDA-Public Use
  Company Number: FR-ABBOTT-11P-056-0877527-00

PATIENT
  Sex: Female
  Weight: 80 kg

DRUGS (6)
  1. HUMIRA [Suspect]
     Indication: PSORIASIS
     Route: 058
     Dates: start: 20110915, end: 20110915
  2. HUMIRA [Suspect]
     Dosage: DAY 7
     Route: 058
     Dates: start: 20110922, end: 20110922
  3. HUMIRA [Suspect]
     Dosage: DAY 14
     Route: 058
     Dates: start: 20110929, end: 20111115
  4. ATARAX [Concomitant]
     Indication: PRURITUS
     Route: 048
  5. ACETAMINOPHEN [Concomitant]
     Indication: PAIN
     Route: 048
  6. METFORMIN HYDROCHLORIDE [Concomitant]
     Indication: DIABETES MELLITUS
     Route: 048
     Dates: start: 20060601

REACTIONS (1)
  - PHLEBITIS [None]
